FAERS Safety Report 16235025 (Version 1)
Quarter: 2019Q2

REPORT INFORMATION
  Report Type: Spontaneous
  Country: US (occurrence: US)
  Receive Date: 20190424
  Receipt Date: 20190424
  Transmission Date: 20190711
  Serious: No
  Sender: FDA-Public Use
  Company Number: US-AQUA PHARMACEUTICALS-2019AQU000092

PATIENT

DRUGS (1)
  1. SEYSARA [Suspect]
     Active Substance: SARECYCLINE HYDROCHLORIDE
     Indication: PRODUCT USED FOR UNKNOWN INDICATION
     Dosage: UNK

REACTIONS (3)
  - Dizziness [Recovered/Resolved]
  - Visual impairment [Recovered/Resolved]
  - Dyspnoea [Recovered/Resolved]
